FAERS Safety Report 21808267 (Version 1)
Quarter: 2023Q1

REPORT INFORMATION
  Report Type: Spontaneous
  Country: GB (occurrence: GB)
  Receive Date: 20230103
  Receipt Date: 20230103
  Transmission Date: 20230418
  Serious: Yes (Other)
  Sender: FDA-Public Use
  Company Number: GB-SUN PHARMACEUTICAL INDUSTRIES LTD-2022R1-371272

PATIENT
  Age: 68 Year
  Sex: Female

DRUGS (3)
  1. AMPHOTERICIN B [Suspect]
     Active Substance: AMPHOTERICIN B
     Indication: COVID-19
     Dosage: 5 MG/KG
     Route: 065
  2. XYLOMETAZOLINE [Suspect]
     Active Substance: XYLOMETAZOLINE
     Indication: COVID-19
     Dosage: 0.1% NASAL DROPS AND SALINE NASAL DOUCHES
     Route: 045
  3. BETAMETHASONE [Suspect]
     Active Substance: BETAMETHASONE
     Indication: COVID-19
     Dosage: 0.1 PERCENT
     Route: 065

REACTIONS (4)
  - Epistaxis [Unknown]
  - Haemoptysis [Unknown]
  - Melaena [Unknown]
  - Therapy non-responder [Unknown]
